FAERS Safety Report 5453987-2 (Version None)
Quarter: 2007Q3

REPORT INFORMATION
  Report Type: 
  Country: None (occurrence: None)
  Receive Date: 20070917
  Receipt Date: 20070605
  Transmission Date: 20080115
  Serious: No
  Sender: FDA-Public Use
  Company Number: US-ASTRAZENECA-2004UW03271

PATIENT
  Age: 64 Year
  Sex: Male
  Weight: 115.5 kg

DRUGS (22)
  1. SEROQUEL [Suspect]
     Indication: MANIA
     Route: 048
  2. SEROQUEL [Suspect]
     Indication: DEPRESSION
     Route: 048
  3. SEROQUEL [Suspect]
     Indication: BIPOLAR DISORDER
     Route: 048
  4. SEROQUEL [Suspect]
     Route: 048
  5. SEROQUEL [Suspect]
     Route: 048
  6. SEROQUEL [Suspect]
     Route: 048
  7. SEROQUEL [Suspect]
     Route: 048
  8. SEROQUEL [Suspect]
     Route: 048
  9. SEROQUEL [Suspect]
     Route: 048
  10. SEROQUEL [Suspect]
     Route: 048
  11. SEROQUEL [Suspect]
     Route: 048
  12. SEROQUEL [Suspect]
     Route: 048
  13. WELLBUTRIN [Concomitant]
  14. DEPAKOTE [Concomitant]
     Route: 048
  15. LUMIGAN [Concomitant]
     Indication: GLAUCOMA
  16. CLONAZEPAM [Concomitant]
  17. METFORMIN HCL [Concomitant]
  18. COREG [Concomitant]
  19. ASPIRIN [Concomitant]
     Route: 048
  20. LIPITOR [Concomitant]
  21. ACTOS [Concomitant]
  22. NIACIN [Concomitant]

REACTIONS (13)
  - ABNORMAL DREAMS [None]
  - BALANCE DISORDER [None]
  - CONFUSIONAL STATE [None]
  - FALL [None]
  - GAIT DISTURBANCE [None]
  - HEADACHE [None]
  - MUSCLE RIGIDITY [None]
  - MUSCLE SPASMS [None]
  - NAUSEA [None]
  - PAIN IN EXTREMITY [None]
  - RADICULOPATHY [None]
  - TREMOR [None]
  - WEIGHT INCREASED [None]
